FAERS Safety Report 16329518 (Version 1)
Quarter: 2019Q2

REPORT INFORMATION
  Report Type: Spontaneous
  Country: QA (occurrence: QA)
  Receive Date: 20190520
  Receipt Date: 20190520
  Transmission Date: 20190711
  Serious: Yes (Hospitalization, Other)
  Sender: FDA-Public Use
  Company Number: QA-IPCA LABORATORIES LIMITED-IPC-2019-QA-000553

PATIENT

DRUGS (1)
  1. WARFARIN [Suspect]
     Active Substance: WARFARIN
     Indication: OEDEMA PERIPHERAL
     Dosage: 11 DF, QD

REACTIONS (5)
  - Anticoagulation drug level above therapeutic [Recovering/Resolving]
  - Ocular hyperaemia [Recovering/Resolving]
  - Medication error [Unknown]
  - Spontaneous hyphaema [Recovering/Resolving]
  - Conjunctival haemorrhage [Recovering/Resolving]
